FAERS Safety Report 10183176 (Version 1)
Quarter: 2014Q2

REPORT INFORMATION
  Report Type: Spontaneous
  Country: GB (occurrence: None)
  Receive Date: 20140516
  Receipt Date: 20140516
  Transmission Date: 20141212
  Serious: Yes (Disabling)
  Sender: FDA-Public Use
  Company Number: AUR-APL-2014-05521

PATIENT
  Age: 76 Year
  Sex: Male
  Weight: 80.6 kg

DRUGS (6)
  1. RISPERIDONE (RISPERIDONE) [Suspect]
     Indication: PRODUCT USED FOR UNKNOWN INDICATION
     Route: 048
     Dates: start: 20140110, end: 20140214
  2. ATORVASTATIN (ATORVASTATIN) [Concomitant]
  3. DILTIAZEM (DILTIAZEM) [Concomitant]
  4. LORAZEPAM (LORAZEPAM) [Concomitant]
  5. MIRTAZAPINE (MIRTAZAPINE) [Concomitant]
  6. SERTRALINE (SERTRALINE) [Concomitant]

REACTIONS (7)
  - Catatonia [None]
  - Extrapyramidal disorder [None]
  - Posture abnormal [None]
  - Movement disorder [None]
  - Muscle twitching [None]
  - Dyskinesia [None]
  - Drug hypersensitivity [None]
